FAERS Safety Report 7096246-7 (Version None)
Quarter: 2010Q4

REPORT INFORMATION
  Report Type: 
  Country: None (occurrence: None)
  Receive Date: 20101109
  Receipt Date: 20101109
  Transmission Date: 20110411
  Serious: Yes (Disabling)
  Sender: FDA-Public Use
  Company Number: None

PATIENT
  Sex: Male
  Weight: 93.2 kg

DRUGS (1)
  1. HUMIRA [Suspect]
     Indication: RHEUMATOID ARTHRITIS
     Dosage: 40 MG WEEKLY SUBCUTANEOUS
     Route: 058
     Dates: start: 20101015, end: 20101027

REACTIONS (5)
  - DRUG INEFFECTIVE [None]
  - GAIT DISTURBANCE [None]
  - PAIN IN EXTREMITY [None]
  - POOR QUALITY SLEEP [None]
  - PRODUCT QUALITY ISSUE [None]
